FAERS Safety Report 7368813-4 (Version None)
Quarter: 2011Q1

REPORT INFORMATION
  Report Type: 
  Country: None (occurrence: None)
  Receive Date: 20110323
  Receipt Date: 20100924
  Transmission Date: 20110831
  Serious: Yes (Hospitalization, Other)
  Sender: FDA-Public Use
  Company Number: US-BAYER-201029576NA

PATIENT
  Sex: Female
  Weight: 52.154 kg

DRUGS (2)
  1. ALEVE [Concomitant]
  2. YASMIN [Suspect]
     Indication: MENORRHAGIA
     Dosage: UNK UNK, UNK
     Dates: start: 20021001, end: 20080701

REACTIONS (5)
  - PULMONARY EMBOLISM [None]
  - FATIGUE [None]
  - DYSPNOEA [None]
  - CHEST PAIN [None]
  - HYPERHIDROSIS [None]
